FAERS Safety Report 9171525 (Version 1)
Quarter: 2013Q1

REPORT INFORMATION
  Report Type: Spontaneous
  Country: US (occurrence: None)
  Receive Date: 20130130
  Receipt Date: 20130130
  Transmission Date: 20140127
  Serious: Yes (Other)
  Sender: FDA-Public Use
  Company Number: 2013034530

PATIENT
  Age: 57 Year
  Sex: Male

DRUGS (4)
  1. IVIG [Suspect]
     Indication: DEMYELINATING POLYNEUROPATHY
  2. METHYLPREDNISOLONE [Suspect]
  3. INFLIXI-MAB [Suspect]
  4. IPILIMUMAB [Suspect]

REACTIONS (4)
  - Neuropathy peripheral [None]
  - Hepatitis [None]
  - Autoimmune disorder [None]
  - Drug ineffective [None]
